FAERS Safety Report 16072712 (Version 3)
Quarter: 2019Q2

REPORT INFORMATION
  Report Type: Spontaneous
  Country: JP (occurrence: JP)
  Receive Date: 20190314
  Receipt Date: 20190404
  Transmission Date: 20190711
  Serious: Yes (Hospitalization, Other)
  Sender: FDA-Public Use
  Company Number: JP-009507513-1902JPN001472J

PATIENT
  Sex: Male

DRUGS (1)
  1. KEYTRUDA [Suspect]
     Active Substance: PEMBROLIZUMAB
     Indication: NON-SMALL CELL LUNG CANCER
     Dosage: 200 MILLIGRAM, Q3W
     Route: 041
     Dates: start: 201901

REACTIONS (6)
  - Diarrhoea [Unknown]
  - Depressed level of consciousness [Unknown]
  - Hepatic function abnormal [Recovering/Resolving]
  - Herpes zoster [Unknown]
  - Corneal exfoliation [Unknown]
  - Pyrexia [Unknown]

NARRATIVE: CASE EVENT DATE: 2019
